FAERS Safety Report 17903316 (Version 1)
Quarter: 2020Q2

REPORT INFORMATION
  Report Type: Spontaneous
  Country: BR (occurrence: BR)
  Receive Date: 20200617
  Receipt Date: 20200617
  Transmission Date: 20200714
  Serious: Yes (Other)
  Sender: FDA-Public Use
  Company Number: BR-ROCHE-2619290

PATIENT
  Sex: Female

DRUGS (3)
  1. COMPLEX B [VITAMIN B COMPLEX] [Concomitant]
  2. RIVOTRIL [Suspect]
     Active Substance: CLONAZEPAM
     Indication: DEPRESSION
     Route: 065
     Dates: start: 2008
  3. ROHYPNOL [Concomitant]
     Active Substance: FLUNITRAZEPAM

REACTIONS (11)
  - Contraindication to medical treatment [Unknown]
  - Hyperglycaemia [Unknown]
  - Therapy interrupted [Unknown]
  - Gastric disorder [Unknown]
  - Liver disorder [Unknown]
  - Renal colic [Unknown]
  - Urinary tract infection [Unknown]
  - Drug dependence [Unknown]
  - Blood pressure fluctuation [Recovered/Resolved]
  - Angle closure glaucoma [Unknown]
  - Dyspepsia [Unknown]

NARRATIVE: CASE EVENT DATE: 2013
